FAERS Safety Report 7490089-8 (Version None)
Quarter: 2011Q2

REPORT INFORMATION
  Report Type: 
  Country: None (occurrence: None)
  Receive Date: 20110519
  Receipt Date: 20110516
  Transmission Date: 20111010
  Serious: Yes (Other)
  Sender: FDA-Public Use
  Company Number: US-PFIZER INC-2011105575

PATIENT
  Sex: Female
  Weight: 77.1 kg

DRUGS (10)
  1. MOBIC [Concomitant]
     Indication: ARTHRITIS
     Dosage: 7.5 MG, 2X/DAY
     Route: 048
  2. CHANTIX [Suspect]
     Indication: SMOKING CESSATION THERAPY
     Dosage: UNK MG, 2X/DAY
     Route: 048
     Dates: start: 20110301, end: 20110301
  3. ULTRAM [Concomitant]
     Indication: DRUG TOLERANCE INCREASED
     Dosage: 50 MG, EVERY 6 HOURS
     Route: 048
  4. IMITREX [Concomitant]
     Indication: MIGRAINE
     Dosage: 100 MG, AS NEEDED
     Route: 048
  5. NEXIUM [Concomitant]
     Indication: GASTRIC DISORDER
     Dosage: 40 MG, 1X/DAY
  6. MIDRIN [Concomitant]
     Indication: HEADACHE
     Dosage: UNK
     Route: 048
  7. CHANTIX [Suspect]
     Dosage: 1 MG, 2X/DAY
     Dates: start: 20110301, end: 20110317
  8. ROBAXIN [Concomitant]
     Indication: PAIN
     Dosage: 1000 MG, 4X/DAY
     Route: 048
  9. TYLENOL W/ CODEINE NO. 4 [Concomitant]
     Indication: PAIN
     Dosage: 300/60
     Route: 048
  10. SOMA [Concomitant]
     Indication: MUSCLE SPASMS
     Dosage: 250 MG, 4X/DAY
     Route: 048

REACTIONS (4)
  - CONVULSION [None]
  - DYSGEUSIA [None]
  - HYPOAESTHESIA [None]
  - SALIVARY HYPERSECRETION [None]
